FAERS Safety Report 4359080-4 (Version None)
Quarter: 2004Q2

REPORT INFORMATION
  Report Type: 
  Country: None (occurrence: None)
  Receive Date: 20040517
  Receipt Date: 20040505
  Transmission Date: 20050107
  Serious: Yes (Hospitalization)
  Sender: FDA-Public Use
  Company Number: DO-MERCK-0405CRI00001

PATIENT
  Age: 61 Year
  Sex: Female
  Weight: 93 kg

DRUGS (5)
  1. EZETIMIBE [Suspect]
     Indication: HYPERCHOLESTEROLAEMIA
     Route: 048
     Dates: start: 20040401, end: 20040101
  2. OMEPRAZOLE [Concomitant]
     Route: 048
     Dates: start: 20040101, end: 20040501
  3. PRAVASTATIN SODIUM [Concomitant]
     Route: 048
     Dates: start: 20040101, end: 20040501
  4. ASPIRIN [Concomitant]
     Route: 048
     Dates: start: 20040101, end: 20040501
  5. CLOPIDOGREL BISULFATE [Concomitant]
     Route: 048
     Dates: start: 20040101, end: 20040501

REACTIONS (1)
  - HYPOGLYCAEMIA [None]
